FAERS Safety Report 19375926 (Version 1)
Quarter: 2021Q2

REPORT INFORMATION
  Report Type: Report from Study
  Country: US (occurrence: US)
  Receive Date: 20210604
  Receipt Date: 20210604
  Transmission Date: 20210717
  Serious: Yes (Hospitalization, Other)
  Sender: FDA-Public Use
  Company Number: US-BIOVITRUM-2021US4887

PATIENT
  Age: 58 Year
  Sex: Female
  Weight: 46 kg

DRUGS (3)
  1. ANAKINRA [Suspect]
     Active Substance: ANAKINRA
     Indication: LYMPHOCYTE ADOPTIVE THERAPY
     Route: 058
     Dates: start: 20201023, end: 20201102
  2. TOCILIZUMAB. [Concomitant]
     Active Substance: TOCILIZUMAB
     Indication: ANTIVIRAL PROPHYLAXIS
     Dates: start: 20201025, end: 20201025
  3. DEXAMETHASONE. [Concomitant]
     Active Substance: DEXAMETHASONE
     Indication: ANTIVIRAL PROPHYLAXIS
     Dosage: 10 MG OR 20 MG Q6H
     Dates: start: 20201025, end: 20201108

REACTIONS (1)
  - Encephalopathy [Recovered/Resolved]

NARRATIVE: CASE EVENT DATE: 20201025
